FAERS Safety Report 5878271-4 (Version None)
Quarter: 2008Q3

REPORT INFORMATION
  Report Type: 
  Country: None (occurrence: None)
  Receive Date: 20080911
  Receipt Date: 20080827
  Transmission Date: 20090109
  Serious: Yes (Death, Hospitalization)
  Sender: FDA-Public Use
  Company Number: FR-AVENTIS-200813157FR

PATIENT
  Age: 88 Year
  Sex: Male

DRUGS (9)
  1. LASIX [Suspect]
     Route: 048
  2. INIPOMP                            /01263201/ [Suspect]
     Indication: DRUG USE FOR UNKNOWN INDICATION
     Route: 048
  3. CIFLOX                             /00697201/ [Suspect]
     Indication: DIABETIC FOOT
     Dates: start: 20080206, end: 20080304
  4. FORTUM                             /00559702/ [Suspect]
     Indication: DIABETIC FOOT
     Route: 042
     Dates: start: 20080206, end: 20080304
  5. CEFTAZIDIME [Suspect]
     Indication: ANGINA PECTORIS
     Route: 062
  6. DIAMICRON [Suspect]
     Route: 048
     Dates: end: 20080305
  7. AUGMENTIN '125' [Concomitant]
     Indication: DIABETIC FOOT
     Dates: start: 20080123, end: 20080206
  8. OFLOCET                            /00731801/ [Concomitant]
     Indication: DIABETIC FOOT
     Dates: start: 20080123, end: 20080206
  9. ORBENINE [Concomitant]
     Indication: DIABETIC FOOT
     Dates: start: 20080112, end: 20080122

REACTIONS (2)
  - CHOLESTASIS [None]
  - RENAL FAILURE [None]
